FAERS Safety Report 4695980-3 (Version None)
Quarter: 2005Q2

REPORT INFORMATION
  Report Type: 
  Country: None (occurrence: None)
  Receive Date: 20050608
  Receipt Date: 20040901
  Transmission Date: 20051028
  Serious: Yes (Other)
  Sender: FDA-Public Use
  Company Number: 379121

PATIENT
  Sex: Male
  Weight: 0.4 kg

DRUGS (2)
  1. ISOTRETINOIN [Suspect]
     Indication: ECZEMA
     Dosage: 20 MG ORAL
     Route: 048
     Dates: start: 20040420, end: 20040620
  2. ORAL CONTRACEPTION (ORAL CONTRACEPTIVE NOS) [Concomitant]

REACTIONS (1)
  - ABORTION INDUCED [None]
